FAERS Safety Report 8966014 (Version 2)
Quarter: 2013Q2

REPORT INFORMATION
  Report Type: Spontaneous
  Country: US (occurrence: US)
  Receive Date: 20121214
  Receipt Date: 20130610
  Transmission Date: 20140414
  Serious: Yes (Other)
  Sender: FDA-Public Use
  Company Number: CHPA2012US024730

PATIENT
  Age: 61 Year
  Sex: Female

DRUGS (3)
  1. NODOZ [Suspect]
     Indication: SOMNOLENCE
     Dosage: 0.5 DF, ONCE A MONTH
     Route: 048
  2. NODOZ [Suspect]
     Dosage: UNK, UNK
     Route: 048
     Dates: end: 2000
  3. NODOZ [Suspect]
     Dosage: 1 TABLET OVER 1 1/2 HOURS
     Route: 048
     Dates: start: 2006, end: 2012

REACTIONS (10)
  - Rotator cuff syndrome [Recovered/Resolved]
  - Depression [Not Recovered/Not Resolved]
  - Panic attack [Not Recovered/Not Resolved]
  - Bunion [Recovered/Resolved]
  - Burning sensation [Recovered/Resolved]
  - Fall [Recovered/Resolved]
  - Foot deformity [Recovered/Resolved]
  - Feeling jittery [Recovered/Resolved]
  - Hyperhidrosis [Not Recovered/Not Resolved]
  - Somnolence [Not Recovered/Not Resolved]
